FAERS Safety Report 6531590-0 (Version None)
Quarter: 2010Q1

REPORT INFORMATION
  Report Type: 
  Country: None (occurrence: None)
  Receive Date: 20100108
  Receipt Date: 20091014
  Transmission Date: 20100710
  Serious: No
  Sender: FDA-Public Use
  Company Number: A0829311A

PATIENT
  Age: 83 Year
  Sex: Female
  Weight: 86 kg

DRUGS (5)
  1. EXTINA [Suspect]
     Indication: PSORIASIS
     Dosage: 2PCT PER DAY
     Route: 061
     Dates: start: 20090901
  2. SYNTHROID [Concomitant]
     Indication: THYROID DISORDER
  3. ATENOLOL [Concomitant]
  4. LISINOPRIL [Concomitant]
  5. TRANXENE [Concomitant]
     Indication: ANXIETY

REACTIONS (2)
  - INAPPROPRIATE SCHEDULE OF DRUG ADMINISTRATION [None]
  - OFF LABEL USE [None]
